FAERS Safety Report 4505404-4 (Version None)
Quarter: 2004Q4

REPORT INFORMATION
  Report Type: 
  Country: None (occurrence: None)
  Receive Date: 20041116
  Receipt Date: 20041101
  Transmission Date: 20050328
  Serious: Yes (Death, Hospitalization)
  Sender: FDA-Public Use
  Company Number: 2004GB02412

PATIENT
  Age: 64 Year
  Sex: Male

DRUGS (5)
  1. ATENOLOL [Suspect]
     Indication: BLOOD PRESSURE INCREASED
     Dosage: 25 MG DAILY
     Dates: start: 19900101
  2. CIPRALEX         /DEN/ [Suspect]
     Indication: DEPRESSION
     Dosage: 10 MG DAILY PO
     Route: 048
     Dates: start: 20040806
  3. CIPRALEX           /DEN/ [Suspect]
     Indication: DEPRESSION
     Dosage: 20 MG DAILY PO
     Route: 048
     Dates: start: 20040816
  4. DIAZEPAM [Suspect]
     Indication: DEPRESSION
     Dosage: 2.5-5 MG /DAY
     Dates: start: 19640101
  5. SIMVASTATIN [Concomitant]

REACTIONS (4)
  - COMPLETED SUICIDE [None]
  - DRUG WITHDRAWAL SYNDROME [None]
  - OVERDOSE [None]
  - SUICIDE ATTEMPT [None]
